FAERS Safety Report 8389021-4 (Version None)
Quarter: 2012Q2

REPORT INFORMATION
  Report Type: 
  Country: None (occurrence: None)
  Receive Date: 20120528
  Receipt Date: 20120523
  Transmission Date: 20120825
  Serious: No
  Sender: FDA-Public Use
  Company Number: US-PFIZER INC-2012125351

PATIENT
  Sex: Male
  Weight: 99.773 kg

DRUGS (3)
  1. LISINOPRIL [Concomitant]
     Indication: HYPERTENSION
     Dosage: 20 MG, UNK
  2. VIAGRA [Suspect]
     Indication: ERECTILE DYSFUNCTION
     Dosage: SPLITTING 100MG TABLET INTO HALF, AS NEEDED
     Route: 048
  3. TESTOSTERONE [Concomitant]
     Dosage: UNK, EVERY 2 WEEKS

REACTIONS (4)
  - HEAD DISCOMFORT [None]
  - FEELING ABNORMAL [None]
  - NASAL CONGESTION [None]
  - FLUSHING [None]
